FAERS Safety Report 6850876-3 (Version None)
Quarter: 2010Q3

REPORT INFORMATION
  Report Type: 
  Country: None (occurrence: None)
  Receive Date: 20100716
  Receipt Date: 20071023
  Transmission Date: 20110219
  Serious: No
  Sender: FDA-Public Use
  Company Number: US-PFIZER INC-2007090379

PATIENT
  Sex: Male

DRUGS (2)
  1. CHANTIX [Suspect]
     Dates: start: 20071020
  2. REBIF [Interacting]
     Indication: MULTIPLE SCLEROSIS

REACTIONS (3)
  - ABDOMINAL PAIN UPPER [None]
  - DRUG INTERACTION [None]
  - VOMITING [None]
